FAERS Safety Report 9031509 (Version 3)
Quarter: 2013Q1

REPORT INFORMATION
  Report Type: Report from Study
  Country: US (occurrence: US)
  Receive Date: 20130124
  Receipt Date: 20130304
  Transmission Date: 20140127
  Serious: Yes (Hospitalization)
  Sender: FDA-Public Use
  Company Number: US-VERTEX PHARMACEUTICALS INC.-2013-001055

PATIENT
  Age: 56 None
  Sex: Male
  Weight: 107 kg

DRUGS (7)
  1. VX-950 (TELAPREVIR) [Suspect]
     Indication: HEPATITIS C
     Dosage: 750 MG, TID
     Route: 048
     Dates: start: 20121228
  2. PEGASYS [Suspect]
     Indication: HEPATITIS C
     Dosage: 180 ?G, QW
     Route: 058
     Dates: start: 20121228
  3. RIBAVIRIN [Suspect]
     Indication: HEPATITIS C
     Dosage: 400 MG QAM, 600 MG QPM
     Route: 048
     Dates: start: 20121228
  4. LOTREL [Concomitant]
     Dosage: 5-10 MG
  5. VALTREX [Concomitant]
     Dosage: 1 G, UNK
  6. MULTIVITAMIN [Concomitant]
  7. COUMADIN [Concomitant]
     Dosage: 10 MG, UNK

REACTIONS (11)
  - Thrombosis [Unknown]
  - Influenza like illness [Unknown]
  - Injection site erythema [Unknown]
  - Irritability [Unknown]
  - Fatigue [Unknown]
  - Rash [Unknown]
  - Anaemia [Unknown]
  - Diarrhoea [Not Recovered/Not Resolved]
  - Pruritus [Unknown]
  - Nausea [Unknown]
  - Dysgeusia [Unknown]
